APPROVED DRUG PRODUCT: OXYBUTYNIN CHLORIDE
Active Ingredient: OXYBUTYNIN CHLORIDE
Strength: 5MG/5ML
Dosage Form/Route: SYRUP;ORAL
Application: A074520 | Product #001 | TE Code: AA
Applicant: LANNETT CO INC
Approved: Mar 29, 1996 | RLD: No | RS: Yes | Type: RX